FAERS Safety Report 4705981-4 (Version None)
Quarter: 2005Q2

REPORT INFORMATION
  Report Type: 
  Country: None (occurrence: None)
  Receive Date: 20050629
  Receipt Date: 20050627
  Transmission Date: 20051028
  Serious: Yes (Hospitalization)
  Sender: FDA-Public Use
  Company Number: TPA2005A00719

PATIENT
  Age: 76 Year
  Sex: Female
  Weight: 68.9467 kg

DRUGS (6)
  1. ACTOS [Suspect]
     Indication: DIABETES MELLITUS NON-INSULIN-DEPENDENT
     Dosage: 45 MG, 1 IN 1 D, PER ORAL
     Route: 048
     Dates: start: 20040101
  2. LIPITOR [Concomitant]
  3. DIOVAN [Concomitant]
  4. METOPROLOL TARTRATE [Concomitant]
  5. PRANDIN [Concomitant]
  6. FUROSEMIDE [Concomitant]

REACTIONS (1)
  - HEART VALVE REPLACEMENT [None]
